FAERS Safety Report 17415531 (Version 1)
Quarter: 2020Q1

REPORT INFORMATION
  Report Type: Spontaneous
  Country: FR (occurrence: FR)
  Receive Date: 20200213
  Receipt Date: 20200213
  Transmission Date: 20200409
  Serious: Yes (Death)
  Sender: FDA-Public Use
  Company Number: FR-MYLANLABS-2020M1016476

PATIENT
  Age: 62 Year
  Sex: Male
  Weight: 64 kg

DRUGS (7)
  1. ATROVENT [Concomitant]
     Active Substance: IPRATROPIUM BROMIDE
  2. BRICANYL [Concomitant]
     Active Substance: TERBUTALINE SULFATE
     Dosage: UNK
  3. INEXIUM                            /01479303/ [Concomitant]
     Active Substance: ESOMEPRAZOLE
  4. CISPLATIN MYLAN [Suspect]
     Active Substance: CISPLATIN
     Indication: THYROID CANCER
     Dosage: 100 MILLIGRAM/SQ. METER, CYCLE
     Route: 042
     Dates: start: 20191129, end: 20191129
  5. DOXORUBICINE ACCORD [Suspect]
     Active Substance: DOXORUBICIN
     Indication: THYROID CANCER
     Dosage: 60 MILLIGRAM/SQ. METER, CYCLE
     Route: 042
     Dates: start: 20191129, end: 20191129
  6. TRIMBOW [Concomitant]
     Active Substance: BECLOMETHASONE DIPROPIONATE\FORMOTEROL FUMARATE\GLYCOPYRROLATE
     Dosage: UNK
  7. LERCAN [Concomitant]
     Active Substance: LERCANIDIPINE
     Dosage: UNK

REACTIONS (2)
  - Acute kidney injury [Fatal]
  - Respiratory distress [Fatal]

NARRATIVE: CASE EVENT DATE: 20191202
